FAERS Safety Report 4662003-1 (Version None)
Quarter: 2005Q2

REPORT INFORMATION
  Report Type: 
  Country: None (occurrence: None)
  Receive Date: 20050511
  Receipt Date: 20050511
  Transmission Date: 20051028
  Serious: Yes (Other)
  Sender: FDA-Public Use
  Company Number: None

PATIENT
  Age: 72 Year
  Sex: Male
  Weight: 83.5 kg

DRUGS (7)
  1. LEVOFLOXACIN [Suspect]
  2. NAPROXEN [Concomitant]
  3. SIMVASTATIN [Concomitant]
  4. ATENOLOL [Concomitant]
  5. DILTIAZEM (INWOOD/TIAZAC) [Concomitant]
  6. LISINOPRIL [Concomitant]
  7. RANITIDINE [Concomitant]

REACTIONS (1)
  - RASH [None]
